FAERS Safety Report 9170193 (Version 4)
Quarter: 2013Q2

REPORT INFORMATION
  Report Type: Report from Study
  Country: BR (occurrence: BR)
  Receive Date: 20130319
  Receipt Date: 20130604
  Transmission Date: 20140414
  Serious: Yes (Death, Hospitalization, Other)
  Sender: FDA-Public Use
  Company Number: PHHY2013BR026469

PATIENT
  Sex: Female

DRUGS (3)
  1. DIOVAN HCT [Suspect]
     Indication: HYPERTENSION
     Dosage: 1 DF (160 MG VALS/12. 5MG HCTZ) QD AFTER BREAKFAST
     Route: 048
     Dates: end: 20130201
  2. CLAUDIC [Concomitant]
     Indication: THROMBOSIS
     Dosage: 1 DF (50 MG), DAILY
     Route: 048
  3. PROLOPA [Concomitant]
     Indication: PARKINSON^S DISEASE
     Dosage: 0.5 DF, DAILY
     Route: 048

REACTIONS (7)
  - Infection [Fatal]
  - Lung infection [Not Recovered/Not Resolved]
  - Fall [Not Recovered/Not Resolved]
  - Femur fracture [Not Recovered/Not Resolved]
  - Pyrexia [Not Recovered/Not Resolved]
  - Feeling abnormal [Not Recovered/Not Resolved]
  - Eschar [Not Recovered/Not Resolved]
